FAERS Safety Report 5372808-X (Version None)
Quarter: 2007Q2

REPORT INFORMATION
  Report Type: 
  Country: None (occurrence: None)
  Receive Date: 20070626
  Receipt Date: 20070611
  Transmission Date: 20071010
  Serious: Yes (Death, Hospitalization, Other)
  Sender: FDA-Public Use
  Company Number: 100#08#2007-02115

PATIENT
  Age: 60 Year
  Sex: Male

DRUGS (1)
  1. METHOTREXATE [Suspect]
     Indication: ARTHRITIS
     Dosage: 10MG WEEKLY SUBCUTANEOUS
     Route: 058

REACTIONS (13)
  - ANOREXIA [None]
  - ANURIA [None]
  - AUTONOMIC NERVOUS SYSTEM IMBALANCE [None]
  - DRUG TOXICITY [None]
  - ESCHERICHIA SEPSIS [None]
  - HAEMATEMESIS [None]
  - HAEMODIALYSIS [None]
  - HYPOTENSION [None]
  - NAUSEA [None]
  - ODYNOPHAGIA [None]
  - PANCYTOPENIA [None]
  - SEPTIC SHOCK [None]
  - VOMITING [None]
